FAERS Safety Report 16799016 (Version 3)
Quarter: 2022Q1

REPORT INFORMATION
  Report Type: Spontaneous
  Country: AU (occurrence: AU)
  Receive Date: 20190912
  Receipt Date: 20220309
  Transmission Date: 20220423
  Serious: Yes (Other)
  Sender: FDA-Public Use
  Company Number: US-PFIZER INC-2019375815

PATIENT
  Weight: 2.249 kg

DRUGS (6)
  1. SUCCINYLCHOLINE CHLORIDE [Suspect]
     Active Substance: SUCCINYLCHOLINE CHLORIDE
     Dosage: 5 MG, UNK
  2. ATROPINE [Concomitant]
     Active Substance: ATROPINE
     Dosage: 0.05 MG, UNK
  3. NEOSTIGMINE [Concomitant]
     Active Substance: NEOSTIGMINE
     Dosage: 80 MG, UNK
  4. ATRACURIUM [Concomitant]
     Active Substance: ATRACURIUM
     Dosage: 0.8 MG, UNK
  5. OXYGEN [Concomitant]
     Active Substance: OXYGEN
     Dosage: UNK
  6. HALOTHANE [Concomitant]
     Active Substance: HALOTHANE
     Dosage: UNK

REACTIONS (1)
  - Apnoea [Unknown]
